FAERS Safety Report 7425145-3 (Version None)
Quarter: 2011Q2

REPORT INFORMATION
  Report Type: 
  Country: None (occurrence: None)
  Receive Date: 20110412
  Receipt Date: 20110329
  Transmission Date: 20111010
  Serious: Yes (Hospitalization)
  Sender: FDA-Public Use
  Company Number: 2011SP001008

PATIENT
  Age: 79 Year
  Sex: Male
  Weight: 78.9 kg

DRUGS (20)
  1. VITAMINS [Suspect]
  2. ZYRTEC [Concomitant]
  3. SPIRIVA [Concomitant]
  4. XOPENEX [Suspect]
     Indication: CHRONIC OBSTRUCTIVE PULMONARY DISEASE
     Dosage: 1.25 MG/3ML;PRN;INHALATION
     Route: 055
     Dates: start: 20110301
  5. XOPENEX [Suspect]
     Indication: CHRONIC OBSTRUCTIVE PULMONARY DISEASE
     Dosage: 1.25 MG/3ML;PRN;INHALATION
     Route: 055
     Dates: start: 20070101, end: 20070101
  6. XOPENEX [Suspect]
     Indication: CHRONIC OBSTRUCTIVE PULMONARY DISEASE
     Dosage: 1.25 MG/3ML;PRN;INHALATION
     Route: 055
     Dates: start: 20090101, end: 20110101
  7. XOPENEX [Suspect]
     Indication: CHRONIC OBSTRUCTIVE PULMONARY DISEASE
     Dosage: 1.25 MG/3ML;PRN;INHALATION
     Route: 055
     Dates: start: 20081201, end: 20090101
  8. XOPENEX [Suspect]
     Indication: CHRONIC OBSTRUCTIVE PULMONARY DISEASE
     Dosage: 1.25 MG/3ML;PRN;INHALATION
     Route: 055
     Dates: start: 20070101, end: 20081201
  9. ISOSORBIDE DINITRATE [Concomitant]
  10. PLAVIX [Concomitant]
  11. AZMACORT [Concomitant]
  12. INFLUENZA VACCINE [Suspect]
     Dates: start: 20070101, end: 20070101
  13. FEXOFENADINE [Concomitant]
  14. CENTRUM  /00554501/ [Concomitant]
  15. SINGULAIR [Concomitant]
  16. ALBUTEROL [Concomitant]
  17. ASPIRIN [Concomitant]
  18. IMDUR [Concomitant]
  19. METOPROLOL SUCCINATE [Concomitant]
  20. LOPRESSOR [Concomitant]

REACTIONS (16)
  - REACTION TO DRUG EXCIPIENTS [None]
  - CHRONIC OBSTRUCTIVE PULMONARY DISEASE [None]
  - HAEMOPTYSIS [None]
  - URTICARIA [None]
  - RASH [None]
  - NASAL POLYPS [None]
  - CANDIDIASIS [None]
  - COLLAPSE OF LUNG [None]
  - ATELECTASIS [None]
  - DYSPNOEA [None]
  - HYPERSENSITIVITY [None]
  - ASTHMA [None]
  - BRONCHITIS [None]
  - OESOPHAGEAL SPASM [None]
  - CHEST PAIN [None]
  - PRURITUS [None]
